FAERS Safety Report 7438287-3 (Version None)
Quarter: 2011Q2

REPORT INFORMATION
  Report Type: 
  Country: None (occurrence: None)
  Receive Date: 20110421
  Receipt Date: 20110421
  Transmission Date: 20111010
  Serious: Yes (Other)
  Sender: FDA-Public Use
  Company Number: None

PATIENT
  Sex: Female
  Weight: 58 kg

DRUGS (9)
  1. OXCARBAZEPINE [Suspect]
     Indication: CONVULSION
     Dosage: PO
     Route: 048
     Dates: start: 20110101, end: 20110311
  2. AMBIEN CR [Concomitant]
  3. LIPITOR [Concomitant]
  4. SLOW-MAG [Concomitant]
  5. MYLANTA [Concomitant]
  6. LEVOTHYROXINE SODIUM [Concomitant]
  7. DILANTIN [Concomitant]
  8. COMPAZINE [Concomitant]
  9. POTASSIUM CHLORIDE [Concomitant]

REACTIONS (1)
  - GRANULOCYTE COUNT DECREASED [None]
